FAERS Safety Report 10533683 (Version 1)
Quarter: 2014Q4

REPORT INFORMATION
  Report Type: Spontaneous
  Country: FR (occurrence: FR)
  Receive Date: 20141022
  Receipt Date: 20141022
  Transmission Date: 20150529
  Serious: Yes (Other)
  Sender: FDA-Public Use
  Company Number: FR-ASTRAZENECA-2014SE79298

PATIENT
  Age: 14169 Day
  Sex: Male

DRUGS (6)
  1. INEXIUM [Suspect]
     Active Substance: ESOMEPRAZOLE
     Route: 065
     Dates: start: 20140910, end: 20140924
  2. TAZOCILLINE [Suspect]
     Active Substance: PIPERACILLIN SODIUM\TAZOBACTAM SODIUM
     Route: 042
     Dates: start: 20140920, end: 20140924
  3. VFEND [Concomitant]
     Active Substance: VORICONAZOLE
     Dates: start: 20140923
  4. CELLCEPT [Suspect]
     Active Substance: MYCOPHENOLATE MOFETIL\MYCOPHENOLATE MOFETIL HYDROCHLORIDE
     Indication: LIVER TRANSPLANT
     Route: 065
     Dates: start: 20140923, end: 20140924
  5. VANCOMYCINE [Concomitant]
     Active Substance: VANCOMYCIN
     Dates: start: 20140918
  6. BACTRIM [Suspect]
     Active Substance: SULFAMETHOXAZOLE\TRIMETHOPRIM
     Route: 065
     Dates: start: 20140918, end: 20140924

REACTIONS (2)
  - Neutropenia [Recovered/Resolved]
  - Bone marrow toxicity [Unknown]

NARRATIVE: CASE EVENT DATE: 20140924
